FAERS Safety Report 6111203-2 (Version None)
Quarter: 2009Q1

REPORT INFORMATION
  Report Type: 
  Country: None (occurrence: None)
  Receive Date: 20090309
  Receipt Date: 20090225
  Transmission Date: 20090719
  Serious: Yes (Hospitalization)
  Sender: FDA-Public Use
  Company Number: WAES 0902USA00335

PATIENT
  Age: 81 Year
  Sex: Female

DRUGS (6)
  1. FOSAMAX [Suspect]
     Indication: OSTEOPOROSIS
     Dosage: 5 MG/DAILY PO
     Route: 048
     Dates: start: 20040428, end: 20090128
  2. SERMION (NICERGOLINE) [Suspect]
     Indication: DEMENTIA
     Dosage: 15 MG/DAILY PO
     Route: 048
     Dates: start: 20080911, end: 20090128
  3. AMLODIPINE [Concomitant]
  4. OLMETEC [Concomitant]
  5. ONEALFA [Concomitant]
  6. DISOPYRAMIDE [Concomitant]

REACTIONS (6)
  - DEMENTIA [None]
  - DISEASE PROGRESSION [None]
  - GASTRIC ULCER HAEMORRHAGE [None]
  - HAEMATEMESIS [None]
  - HAEMORRHAGIC DIATHESIS [None]
  - HYPOCHROMIC ANAEMIA [None]
